FAERS Safety Report 22006235 (Version 1)
Quarter: 2023Q1

REPORT INFORMATION
  Report Type: Spontaneous
  Country: FR (occurrence: FR)
  Receive Date: 20230217
  Receipt Date: 20230217
  Transmission Date: 20230417
  Serious: Yes (Hospitalization, Other)
  Sender: FDA-Public Use
  Company Number: None

PATIENT
  Age: 48 Year
  Sex: Male
  Weight: 80.8 kg

DRUGS (21)
  1. GLIVEC [Suspect]
     Active Substance: IMATINIB MESYLATE
     Indication: Chronic graft versus host disease in skin
     Dosage: 200 MG, QD
     Route: 048
     Dates: start: 20220111, end: 20220412
  2. GLIVEC [Suspect]
     Active Substance: IMATINIB MESYLATE
     Dosage: 100 MG, QD
     Route: 048
     Dates: start: 20220413, end: 20221009
  3. GLIVEC [Suspect]
     Active Substance: IMATINIB MESYLATE
     Dosage: 200 MG, QD
     Route: 048
     Dates: start: 20221010, end: 20221218
  4. GLIVEC [Suspect]
     Active Substance: IMATINIB MESYLATE
     Dosage: 300 MG, QD
     Route: 048
     Dates: start: 20221219
  5. PANTOPRAZOLE [Concomitant]
     Active Substance: PANTOPRAZOLE
     Indication: Gastritis prophylaxis
     Dosage: 40 MG, QD
     Route: 048
  6. FOLIC ACID [Concomitant]
     Active Substance: FOLIC ACID
     Indication: Product used for unknown indication
     Dosage: 5 MG, QD
     Route: 048
  7. NEORAL [Concomitant]
     Active Substance: CYCLOSPORINE
     Indication: Chronic graft versus host disease in skin
     Dosage: 2 DOSAGE FORM, QD
     Route: 048
     Dates: start: 202203
  8. URSODIOL [Concomitant]
     Active Substance: URSODIOL
     Indication: Product used for unknown indication
     Dosage: 500 MG, QD
     Route: 048
  9. MAGNESIUM [Concomitant]
     Active Substance: MAGNESIUM
     Indication: Product used for unknown indication
     Dosage: 5 DOSAGE FORM, QD
     Route: 048
  10. OXAZEPAM [Concomitant]
     Active Substance: OXAZEPAM
     Indication: Schizophrenia
     Dosage: 0.5 DOSAGE FORM (0.5 CP/J SI BESOIN) (COMPRIM? SECABLE )
     Route: 048
  11. HALDOL [Concomitant]
     Active Substance: HALOPERIDOL
     Indication: Schizophrenia
     Dosage: 7 MG, QD (5 MG MATIN 2 MG SOIR)
     Route: 048
  12. PRASUGREL [Concomitant]
     Active Substance: PRASUGREL
     Indication: Ischaemic heart disease prophylaxis
     Dosage: 10 MG, QD
     Route: 048
  13. ACETAMINOPHEN [Concomitant]
     Active Substance: ACETAMINOPHEN
     Indication: Neuralgia
     Dosage: 1 G (1000 MG/J SI BESOIN)
     Route: 048
  14. KARDEGIC [Concomitant]
     Active Substance: ASPIRIN DL-LYSINE
     Indication: Ischaemic heart disease prophylaxis
     Dosage: 1 DOSAGE FORM, QD
     Route: 048
  15. VALACYCLOVIR HYDROCHLORIDE [Concomitant]
     Active Substance: VALACYCLOVIR HYDROCHLORIDE
     Indication: Opportunistic infection prophylaxis
     Dosage: 500 MG, QD
     Route: 048
  16. GABAPENTIN [Concomitant]
     Active Substance: GABAPENTIN
     Indication: Neuralgia
     Dosage: 1800 MG, QD
     Route: 048
  17. TRAMADOL HYDROCHLORIDE [Concomitant]
     Active Substance: TRAMADOL HYDROCHLORIDE
     Indication: Neuralgia
     Dosage: 50 MG (50 MG/J SI BESOIN)
     Route: 048
  18. PENICILLIN V [Concomitant]
     Active Substance: PENICILLIN V
     Indication: Opportunistic infection prophylaxis
     Dosage: 2 MILLION INTERNATIONAL UNIT, QD
     Route: 048
  19. ATORVASTATIN [Concomitant]
     Active Substance: ATORVASTATIN
     Indication: Ischaemic heart disease prophylaxis
     Dosage: 80 MG, QD
     Route: 048
  20. BISOPROLOL FUMARATE [Concomitant]
     Active Substance: BISOPROLOL FUMARATE
     Indication: Ischaemic heart disease prophylaxis
     Dosage: 1.25 MG, QD
     Route: 048
  21. SPIRONOLACTONE [Concomitant]
     Active Substance: SPIRONOLACTONE
     Indication: Ischaemic heart disease prophylaxis
     Dosage: 25 MG, QD
     Route: 048

REACTIONS (2)
  - Skin ulcer [Not Recovered/Not Resolved]
  - Thrombocytopenia [Not Recovered/Not Resolved]

NARRATIVE: CASE EVENT DATE: 20220118
